FAERS Safety Report 4589177-5 (Version None)
Quarter: 2005Q1

REPORT INFORMATION
  Report Type: 
  Country: None (occurrence: None)
  Receive Date: 20050216
  Receipt Date: 20050216
  Transmission Date: 20050727
  Serious: Yes (Death)
  Sender: FDA-Public Use
  Company Number: None

PATIENT
  Age: 71 Year
  Sex: Male
  Weight: 94.8018 kg

DRUGS (3)
  1. METFORMIN  850MG [Suspect]
     Indication: DIABETES MELLITUS
     Dosage: 850MG  PO TID
     Route: 048
  2. ALDACTONE [Suspect]
  3. ZESTRIL [Suspect]

REACTIONS (5)
  - BLOOD PH DECREASED [None]
  - CARDIO-RESPIRATORY ARREST [None]
  - HYPERKALAEMIA [None]
  - LACTIC ACIDOSIS [None]
  - RENAL FAILURE ACUTE [None]
